FAERS Safety Report 12562352 (Version 8)
Quarter: 2016Q4

REPORT INFORMATION
  Report Type: Spontaneous
  Country: US (occurrence: US)
  Receive Date: 20160715
  Receipt Date: 20161103
  Transmission Date: 20170207
  Serious: Yes (Other)
  Sender: FDA-Public Use
  Company Number: US-009507513-1607USA006168

PATIENT
  Age: 19 Year
  Sex: Female

DRUGS (2)
  1. IMPLANON [Suspect]
     Active Substance: ETONOGESTREL
     Indication: CONTRACEPTION
     Dosage: 1 ROD/3 YEARS
     Route: 059
     Dates: start: 20130410
  2. NEXPLANON [Suspect]
     Active Substance: ETONOGESTREL
     Dosage: UNK
     Route: 059
     Dates: start: 20160614, end: 2016

REACTIONS (9)
  - Weight increased [Unknown]
  - Vaginal infection [Unknown]
  - Migration of implanted drug [Recovered/Resolved]
  - Incorrect drug administration duration [Unknown]
  - Inflammation [Not Recovered/Not Resolved]
  - Complication associated with device [Recovered/Resolved]
  - Surgery [Unknown]
  - Dyspnoea [Unknown]
  - Overdose [Unknown]

NARRATIVE: CASE EVENT DATE: 2016
